FAERS Safety Report 6529360-2 (Version None)
Quarter: 2010Q1

REPORT INFORMATION
  Report Type: 
  Country: None (occurrence: None)
  Receive Date: 20100107
  Receipt Date: 20091229
  Transmission Date: 20100710
  Serious: No
  Sender: FDA-Public Use
  Company Number: US-JNJFOC-20091207769

PATIENT
  Sex: Female
  Weight: 72.58 kg

DRUGS (4)
  1. FENTANYL [Suspect]
     Indication: PAIN
     Route: 062
  2. FENTANYL [Suspect]
     Dosage: 25UG/HR + 50UG/HR
     Route: 062
  3. FENTANYL CITRATE [Suspect]
     Indication: PAIN
     Route: 062
  4. MANY OTHER UNSPECIFIED MEDICATIONS [Concomitant]
     Route: 065

REACTIONS (2)
  - BODY HEIGHT DECREASED [None]
  - WRONG TECHNIQUE IN DRUG USAGE PROCESS [None]
